FAERS Safety Report 12784829 (Version 1)
Quarter: 2016Q3

REPORT INFORMATION
  Report Type: Spontaneous
  Country: US (occurrence: CA)
  Receive Date: 20160927
  Receipt Date: 20160927
  Transmission Date: 20161109
  Serious: Yes (Hospitalization)
  Sender: FDA-Public Use
  Company Number: US-LPDUSPRD-20160834

PATIENT
  Age: 48 Year
  Sex: Female

DRUGS (19)
  1. CARDIZEM [Concomitant]
     Active Substance: DILTIAZEM HYDROCHLORIDE
     Dosage: DOSE UNKNOWN
     Route: 065
  2. VITAMIN D [Concomitant]
     Active Substance: CHOLECALCIFEROL
     Dosage: DOSE UNKNOWN
     Route: 065
  3. PANTOLOC [Suspect]
     Active Substance: PANTOPRAZOLE SODIUM
     Dosage: 40 MG 1X/DAY
     Route: 065
     Dates: start: 20150101
  4. CEFTRIAXONE SODIUM. [Suspect]
     Active Substance: CEFTRIAXONE SODIUM
     Dosage: 2 G, 1X/DAY
     Route: 042
     Dates: start: 20150913, end: 20150916
  5. VANCOMYCIN HCL [Suspect]
     Active Substance: VANCOMYCIN HYDROCHLORIDE
     Dosage: DOSE UNKNOWN
     Route: 042
     Dates: start: 20150914, end: 20150916
  6. ANCEF [Suspect]
     Active Substance: CEFAZOLIN SODIUM
     Dosage: 2 G 1X/DAY
     Route: 042
     Dates: start: 20150916
  7. VENOFER [Suspect]
     Active Substance: IRON SUCROSE
     Dosage: DOSE UNK, CYCLIC (Q2WKS)
     Route: 042
     Dates: start: 201409
  8. PLAQUENIL [Concomitant]
     Active Substance: HYDROXYCHLOROQUINE SULFATE
     Dosage: DOSE UNKNOWN
     Route: 065
  9. PREDNISONE. [Concomitant]
     Active Substance: PREDNISONE
     Dosage: DOSE UNKNOWN
     Route: 065
  10. APO-CEPHALEX [Concomitant]
     Active Substance: CEPHALEXIN
     Dosage: DOSE UNKNOWN
     Route: 065
  11. STEMETIL [Concomitant]
     Active Substance: PROCHLORPERAZINE MALEATE
     Dosage: DOSE UNKNOWN
     Route: 065
  12. SALOFALK [Concomitant]
     Active Substance: MESALAMINE
     Dosage: DOSE UNKNOWN
     Route: 065
     Dates: start: 201501, end: 201503
  13. KETOLEX [Suspect]
     Active Substance: KETOROLAC TROMETHAMINE
     Dosage: 500 MG 4X/DAY
     Route: 048
     Dates: start: 20150918, end: 20151002
  14. IMOVAN [Concomitant]
     Dosage: UNKNOWN
     Route: 065
  15. ACTONEL [Concomitant]
     Active Substance: RISEDRONATE SODIUM
     Dosage: DOSE UNKNOWN
     Route: 065
  16. METHOTREXATE. [Concomitant]
     Active Substance: METHOTREXATE
     Dosage: DOSE UNKNOWN
     Route: 065
     Dates: start: 20150908
  17. FRAGMIN [Suspect]
     Active Substance: DALTEPARIN SODIUM
     Dosage: 15000 IU, DAILY
     Route: 058
  18. ENTYVIO [Suspect]
     Active Substance: VEDOLIZUMAB
     Dosage: 300 MG
     Route: 042
     Dates: start: 20150821
  19. DILAUDID [Concomitant]
     Active Substance: HYDROMORPHONE HYDROCHLORIDE
     Dosage: DOSE UNKNOWN
     Route: 065

REACTIONS (16)
  - Tooth abscess [Recovered/Resolved]
  - Breast abscess [Unknown]
  - Infusion site oedema [Unknown]
  - Infusion site pain [Unknown]
  - Abscess limb [Unknown]
  - Abscess [Unknown]
  - Infusion site warmth [Unknown]
  - Infusion site erythema [Unknown]
  - Diarrhoea haemorrhagic [Recovered/Resolved]
  - Haematoma [Unknown]
  - Secretion discharge [Recovered/Resolved]
  - Diarrhoea [Unknown]
  - Colitis ulcerative [Recovered/Resolved]
  - Secretion discharge [Unknown]
  - Abscess limb [Recovered/Resolved]
  - Erythema nodosum [Unknown]

NARRATIVE: CASE EVENT DATE: 2015
